FAERS Safety Report 8469301-4 (Version None)
Quarter: 2012Q2

REPORT INFORMATION
  Report Type: 
  Country: None (occurrence: None)
  Receive Date: 20120626
  Receipt Date: 20120621
  Transmission Date: 20120825
  Serious: Yes (Hospitalization)
  Sender: FDA-Public Use
  Company Number: US-SANOFI-AVENTIS-2012SA044569

PATIENT
  Age: 60 Year
  Sex: Female
  Weight: 77.7 kg

DRUGS (9)
  1. PACLITAXEL [Suspect]
     Route: 042
     Dates: start: 20111022
  2. CARBOPLATIN [Suspect]
     Indication: OVARIAN EPITHELIAL CANCER
     Dosage: AUC: 6 ON DAY 1 CYCLES:1-6596 MG
     Route: 042
     Dates: start: 20110729
  3. ATIVAN [Concomitant]
  4. PACLITAXEL [Suspect]
     Indication: OVARIAN EPITHELIAL CANCER
     Dosage: CYCLE:1-6OVER 3 HRS ON DAY 1
     Route: 042
     Dates: start: 20110729
  5. DOCETAXEL [Suspect]
     Indication: OVARIAN EPITHELIAL CANCER
     Dosage: DOSE PRIOR TO EVENT 150 MG
     Route: 065
  6. ATENOLOL [Concomitant]
  7. ESOMEPRAZOLE MAGNESIUM [Concomitant]
  8. DIFLUCAN [Concomitant]
  9. BEVACIZUMAB [Suspect]
     Indication: OVARIAN EPITHELIAL CANCER
     Dosage: 30-90 MINUTES ON DAY 1 STARTING WITH CYCLES 2 (15MG/KG)
     Route: 042

REACTIONS (4)
  - HYPERKALAEMIA [None]
  - DIARRHOEA [None]
  - RENAL FAILURE ACUTE [None]
  - HYPONATRAEMIA [None]
